FAERS Safety Report 9305889 (Version 1)
Quarter: 2013Q2

REPORT INFORMATION
  Report Type: Spontaneous
  Country: US (occurrence: US)
  Receive Date: 20130523
  Receipt Date: 20130523
  Transmission Date: 20140414
  Serious: No
  Sender: FDA-Public Use
  Company Number: US-PFIZER INC-2013157420

PATIENT
  Age: 45 Year
  Sex: Female
  Weight: 78.46 kg

DRUGS (3)
  1. BOSULIF [Suspect]
     Indication: CHRONIC MYELOID LEUKAEMIA
     Dosage: 500 MG, 1X/DAY
     Route: 048
     Dates: start: 201305
  2. MORPHINE [Concomitant]
     Indication: PAIN
     Dosage: UNK
  3. BUPROPION [Concomitant]
     Dosage: UNK

REACTIONS (2)
  - Rash generalised [Unknown]
  - Rash [Unknown]
